FAERS Safety Report 24591745 (Version 1)
Quarter: 2024Q4

REPORT INFORMATION
  Report Type: Report from Study
  Country: JP (occurrence: JP)
  Receive Date: 20241108
  Receipt Date: 20241108
  Transmission Date: 20250115
  Serious: Yes (Death, Other)
  Sender: TAKEDA
  Company Number: JP-TAKEDA-2024TJP016080

PATIENT

DRUGS (1)
  1. MARIBAVIR [Suspect]
     Active Substance: MARIBAVIR
     Indication: Pneumonia cytomegaloviral
     Dosage: 400 MILLIGRAM, BID
     Route: 048
     Dates: start: 20241028, end: 20241101

REACTIONS (1)
  - Death [Fatal]
